FAERS Safety Report 13891596 (Version 1)
Quarter: 2017Q3

REPORT INFORMATION
  Report Type: Spontaneous
  Country: FR (occurrence: FR)
  Receive Date: 20170822
  Receipt Date: 20170822
  Transmission Date: 20171127
  Serious: Yes (Other)
  Sender: FDA-Public Use
  Company Number: FR-ALSI-201700234

PATIENT
  Age: 62 Year
  Sex: Male

DRUGS (1)
  1. OXYGENE MEDICINAL LIQUIDE [Suspect]
     Active Substance: OXYGEN
     Indication: PRODUCT USED FOR UNKNOWN INDICATION
     Route: 055
     Dates: start: 20170407

REACTIONS (3)
  - Accident [Recovered/Resolved]
  - Intentional product misuse [Recovered/Resolved]
  - Thermal burn [Recovered/Resolved]
